FAERS Safety Report 4859908-5 (Version None)
Quarter: 2005Q4

REPORT INFORMATION
  Report Type: 
  Country: None (occurrence: None)
  Receive Date: 20051219
  Receipt Date: 20051210
  Transmission Date: 20060501
  Serious: Yes (Hospitalization)
  Sender: FDA-Public Use
  Company Number: 2005AP06416

PATIENT
  Age: 60 Year
  Sex: Female

DRUGS (3)
  1. ARIMIDEX [Suspect]
     Indication: BREAST CANCER
     Route: 048
     Dates: start: 20040806
  2. RADIATION [Concomitant]
     Indication: BREAST CANCER
     Dosage: GIVEN AFTER BREAST CONSERVING SURGERY.
  3. RADIATION [Concomitant]
     Dosage: 50 GY TO RIGHT BREAST
     Dates: start: 20040831

REACTIONS (1)
  - CRYPTOGENIC ORGANIZING PNEUMONIA [None]
